FAERS Safety Report 16544682 (Version 1)
Quarter: 2019Q3

REPORT INFORMATION
  Report Type: Spontaneous
  Country: US (occurrence: US)
  Receive Date: 20190709
  Receipt Date: 20190709
  Transmission Date: 20191004
  Serious: Yes (Other)
  Sender: FDA-Public Use
  Company Number: US-BAYER-2019-124707

PATIENT
  Age: 13 Year
  Sex: Female
  Weight: 41 kg

DRUGS (1)
  1. COPPERTONE SPORT FREE SPF 50 [Suspect]
     Active Substance: AVOBENZONE\HOMOSALATE\OCTISALATE\OCTOCRYLENE
     Dosage: APPLIED TO SKIN; DROP
     Route: 061

REACTIONS (2)
  - Sunburn [Unknown]
  - Shock [Unknown]

NARRATIVE: CASE EVENT DATE: 20190630
